FAERS Safety Report 24264742 (Version 2)
Quarter: 2025Q1

REPORT INFORMATION
  Report Type: Spontaneous
  Country: JP (occurrence: JP)
  Receive Date: 20240829
  Receipt Date: 20250117
  Transmission Date: 20250409
  Serious: Yes (Other)
  Sender: REGENERON
  Company Number: JP-BAYER-2024A113281

PATIENT
  Age: 79 Year
  Sex: Female

DRUGS (1)
  1. EYLEA HD [Suspect]
     Active Substance: AFLIBERCEPT
     Indication: Age-related macular degeneration
     Route: 031
     Dates: start: 20240517

REACTIONS (4)
  - Retinal oedema [Unknown]
  - Eye inflammation [Recovering/Resolving]
  - Retinal vascular disorder [Recovered/Resolved]
  - Retinal vasculitis [Recovered/Resolved]

NARRATIVE: CASE EVENT DATE: 20240614
